FAERS Safety Report 20126518 (Version 1)
Quarter: 2021Q4

REPORT INFORMATION
  Report Type: Spontaneous
  Country: FR (occurrence: FR)
  Receive Date: 20211129
  Receipt Date: 20211129
  Transmission Date: 20220303
  Serious: Yes (Other)
  Sender: FDA-Public Use
  Company Number: None

PATIENT
  Age: 44 Year
  Sex: Female
  Weight: 72 kg

DRUGS (2)
  1. IBUPROFEN [Suspect]
     Active Substance: IBUPROFEN
     Indication: Pain
     Dosage: UNK(400 MG ON 03/19 1200 MG ON 03/20 AND 03/21 400 MG ON 03/22)
     Route: 048
     Dates: start: 20210319, end: 20210322
  2. OFLOXACIN [Suspect]
     Active Substance: OFLOXACIN
     Indication: Pyelonephritis
     Dosage: UNK
     Route: 048
     Dates: start: 20210319, end: 20210422

REACTIONS (1)
  - Renal failure [Recovered/Resolved]

NARRATIVE: CASE EVENT DATE: 20210322
